FAERS Safety Report 18206448 (Version 2)
Quarter: 2020Q4

REPORT INFORMATION
  Report Type: Spontaneous
  Country: IT (occurrence: IT)
  Receive Date: 20200828
  Receipt Date: 20201015
  Transmission Date: 20210113
  Serious: Yes (Other)
  Sender: FDA-Public Use
  Company Number: IT-QUAGEN-2020QUALIT00068

PATIENT
  Age: 84 Year
  Sex: Male

DRUGS (5)
  1. ZINC OXIDE. [Interacting]
     Active Substance: ZINC OXIDE
     Indication: SYMMETRICAL DRUG-RELATED INTERTRIGINOUS AND FLEXURAL EXANTHEMA
     Route: 065
  2. ZINC OXIDE. [Interacting]
     Active Substance: ZINC OXIDE
     Indication: ERYTHEMA MULTIFORME
  3. TRIAMCINOLONE ACETONIDE LOTION USP [Suspect]
     Active Substance: TRIAMCINOLONE ACETONIDE
     Indication: OSTEOARTHRITIS
     Route: 014
  4. ZINC OXIDE. [Interacting]
     Active Substance: ZINC OXIDE
     Indication: DERMATITIS CONTACT
  5. RAMIPRIL. [Concomitant]
     Active Substance: RAMIPRIL
     Indication: HYPERTENSION
     Route: 065

REACTIONS (3)
  - Dermatitis contact [Recovered/Resolved]
  - Symmetrical drug-related intertriginous and flexural exanthema [Recovered/Resolved]
  - Erythema multiforme [Recovered/Resolved]
